FAERS Safety Report 7442995-8 (Version None)
Quarter: 2011Q2

REPORT INFORMATION
  Report Type: 
  Country: None (occurrence: None)
  Receive Date: 20110419
  Receipt Date: 20110408
  Transmission Date: 20111010
  Serious: Yes (Death, Hospitalization)
  Sender: FDA-Public Use
  Company Number: 115458

PATIENT
  Age: 59 Year
  Sex: Male

DRUGS (1)
  1. CISPLATIN [Suspect]
     Indication: SMALL CELL LUNG CANCER STAGE UNSPECIFIED

REACTIONS (10)
  - BEDRIDDEN [None]
  - DECREASED APPETITE [None]
  - DEMENTIA [None]
  - WEIGHT DECREASED [None]
  - CEREBRAL ATROPHY [None]
  - AMNESIA [None]
  - FATIGUE [None]
  - MUSCULAR WEAKNESS [None]
  - CSF PROTEIN INCREASED [None]
  - NEUROLOGICAL DECOMPENSATION [None]
